FAERS Safety Report 9061230 (Version 1)
Quarter: 2013Q1

REPORT INFORMATION
  Report Type: Spontaneous
  Country: US (occurrence: None)
  Receive Date: 20130207
  Receipt Date: 20130207
  Transmission Date: 20140127
  Serious: No
  Sender: FDA-Public Use
  Company Number: None

PATIENT
  Sex: Female
  Weight: 67.59 kg

DRUGS (1)
  1. CLINDAMYCIN [Suspect]
     Dosage: 1 APPLICATION NIGHTLY VAGINAL
     Dates: start: 20130118, end: 20130121

REACTIONS (3)
  - Product quality issue [None]
  - Drug dose omission [None]
  - Economic problem [None]
